FAERS Safety Report 4989418-6 (Version None)
Quarter: 2006Q2

REPORT INFORMATION
  Report Type: 
  Country: None (occurrence: None)
  Receive Date: 20060502
  Receipt Date: 20050414
  Transmission Date: 20061013
  Serious: Yes (Hospitalization, Other)
  Sender: FDA-Public Use
  Company Number: US-MERCK-0504USA02538

PATIENT
  Age: 71 Year
  Sex: Female
  Weight: 71 kg

DRUGS (1)
  1. VIOXX [Suspect]
     Indication: ARTHRITIS
     Route: 048
     Dates: start: 19990101, end: 20040101

REACTIONS (3)
  - CARDIAC DISORDER [None]
  - MYOCARDIAL INFARCTION [None]
  - OVERDOSE [None]
